FAERS Safety Report 14930214 (Version 2)
Quarter: 2018Q2

REPORT INFORMATION
  Report Type: Report from Study
  Country: DE (occurrence: DE)
  Receive Date: 20180523
  Receipt Date: 20180628
  Transmission Date: 20180711
  Serious: Yes (Other)
  Sender: FDA-Public Use
  Company Number: PHHY2018DE004369

PATIENT
  Sex: Male

DRUGS (2)
  1. MEKINIST [Suspect]
     Active Substance: TRAMETINIB DIMETHYL SULFOXIDE
     Indication: MALIGNANT MELANOMA
     Dosage: 2 MG, QD
     Route: 048
     Dates: start: 20161130
  2. TAFINLAR [Suspect]
     Active Substance: DABRAFENIB MESYLATE
     Indication: MALIGNANT MELANOMA
     Dosage: 300 MG, QD
     Route: 048
     Dates: start: 20161130

REACTIONS (21)
  - Eyelid function disorder [Unknown]
  - Lymphatic disorder [Unknown]
  - Oedema peripheral [Unknown]
  - Pneumonitis [Unknown]
  - Paraesthesia [Unknown]
  - Skin disorder [Unknown]
  - Fatigue [Unknown]
  - Raynaud^s phenomenon [Unknown]
  - Nausea [Unknown]
  - Pulse abnormal [Unknown]
  - Pain [Unknown]
  - Pallor [Unknown]
  - Pruritus [Unknown]
  - Vomiting [Unknown]
  - Cyanosis [Unknown]
  - Peripheral swelling [Unknown]
  - Tension [Unknown]
  - Hypothermia [Recovering/Resolving]
  - Chills [Unknown]
  - Pyrexia [Unknown]
  - Lividity [Unknown]

NARRATIVE: CASE EVENT DATE: 201703
